FAERS Safety Report 9842280 (Version 1)
Quarter: 2014Q1

REPORT INFORMATION
  Report Type: Spontaneous
  Country: US (occurrence: US)
  Receive Date: 20140124
  Receipt Date: 20140124
  Transmission Date: 20141002
  Serious: No
  Sender: FDA-Public Use
  Company Number: US-GILEAD-2014-0092942

PATIENT
  Age: 83 Year
  Sex: Female

DRUGS (2)
  1. CAYSTON [Suspect]
     Indication: BRONCHIECTASIS
     Dosage: 75 MG, UNK
     Route: 055
     Dates: start: 20131104
  2. TOBI                               /00304201/ [Concomitant]

REACTIONS (1)
  - Rash [Not Recovered/Not Resolved]
